FAERS Safety Report 21110185 (Version 3)
Quarter: 2023Q2

REPORT INFORMATION
  Report Type: Report from Study
  Country: IN (occurrence: IN)
  Receive Date: 20220721
  Receipt Date: 20230531
  Transmission Date: 20230722
  Serious: Yes (Other)
  Sender: FDA-Public Use
  Company Number: IN-NOVARTISPH-NVSC2021IN165725

PATIENT
  Age: 62 Year
  Sex: Female

DRUGS (7)
  1. RIBOCICLIB [Suspect]
     Active Substance: RIBOCICLIB
     Indication: Breast cancer metastatic
     Dosage: 600 MG, QD
     Route: 048
     Dates: start: 20200929, end: 20210702
  2. RIBOCICLIB [Suspect]
     Active Substance: RIBOCICLIB
     Dosage: 600 MG, QD
     Route: 048
     Dates: start: 20210810
  3. FULVESTRANT [Concomitant]
     Active Substance: FULVESTRANT
     Indication: Breast cancer metastatic
     Dosage: UNK
     Route: 030
     Dates: start: 20200929
  4. LEVOTHYROXINE [Concomitant]
     Active Substance: LEVOTHYROXINE
     Indication: Product used for unknown indication
     Dosage: 50 MG
     Route: 065
     Dates: start: 20220711
  5. NEXITO PLUS [Concomitant]
     Indication: Product used for unknown indication
     Dosage: UNK
     Route: 065
  6. BECOSULES-Z [Concomitant]
     Indication: Product used for unknown indication
     Dosage: UNK
     Route: 065
  7. VITAMIN D NOS [Concomitant]
     Active Substance: VITAMIN D NOS
     Indication: Product used for unknown indication
     Dosage: UNK (CALCIUM)
     Route: 065

REACTIONS (5)
  - Hypothyroidism [Not Recovered/Not Resolved]
  - COVID-19 [Recovering/Resolving]
  - Anxiety [Not Recovered/Not Resolved]
  - Bone lesion [Not Recovered/Not Resolved]
  - Pruritus [Not Recovered/Not Resolved]

NARRATIVE: CASE EVENT DATE: 20210702
